FAERS Safety Report 13638054 (Version 1)
Quarter: 2020Q3

REPORT INFORMATION
  Report Type: Report from Study
  Country: JP (occurrence: JP)
  Receive Date: 20170609
  Receipt Date: 20170609
  Transmission Date: 20201104
  Serious: Yes (Death, Hospitalization)
  Sender: FDA-Public Use
  Company Number: JP-ASTRAZENECA-2016SF18546

PATIENT
  Age: 29108 Day
  Sex: Male

DRUGS (27)
  1. TREMELIMUMAB. [Suspect]
     Active Substance: TREMELIMUMAB
     Indication: NON-SMALL CELL LUNG CANCER
     Dosage: 53.0MG ONCE/SINGLE ADMINISTRATION
     Route: 042
     Dates: start: 20160809, end: 20160809
  2. CROTAMITON [Concomitant]
     Active Substance: CROTAMITON
     Indication: RASH MACULO-PAPULAR
     Dosage: 1 APPLICATION PRN
     Route: 003
     Dates: start: 20160822, end: 20160923
  3. MEDI4736 [Suspect]
     Active Substance: DURVALUMAB
     Indication: NON-SMALL CELL LUNG CANCER
     Dosage: 1060.0MG ONCE/SINGLE ADMINISTRATION
     Route: 042
     Dates: start: 20160906, end: 20160906
  4. TREMELIMUMAB. [Suspect]
     Active Substance: TREMELIMUMAB
     Indication: NON-SMALL CELL LUNG CANCER
     Dosage: 53.0MG ONCE/SINGLE ADMINISTRATION
     Route: 042
     Dates: start: 20160616, end: 20160616
  5. HEPARINOID [Concomitant]
     Active Substance: CHONDROITIN SULFATE (BOVINE)
     Indication: DRY SKIN
     Dosage: 1 APPLICATION PRN
     Route: 003
     Dates: start: 20160527
  6. ESOMEPRAZOLE MAGNESIUM. [Concomitant]
     Active Substance: ESOMEPRAZOLE MAGNESIUM
     Indication: GASTRITIS PROPHYLAXIS
     Route: 048
     Dates: start: 20161013, end: 20161130
  7. MEDI4736 [Suspect]
     Active Substance: DURVALUMAB
     Indication: NON-SMALL CELL LUNG CANCER
     Dosage: 1060.0MG ONCE/SINGLE ADMINISTRATION
     Route: 042
     Dates: start: 20160809, end: 20160809
  8. MOSAPRIDE CITRATE [Concomitant]
     Active Substance: MOSAPRIDE CITRATE
     Indication: DYSPEPSIA
     Route: 048
     Dates: start: 20160524, end: 20161130
  9. NICERGOLINE [Concomitant]
     Active Substance: NICERGOLINE
     Indication: CEREBRAL INFARCTION
     Route: 048
     Dates: end: 20161130
  10. GLYCYRON (AMMONIUM GLYCYRRHIZATE\GLYCINE\RACEMETHIONINE) [Concomitant]
     Active Substance: AMMONIUM GLYCYRRHIZATE\GLYCINE\RACEMETHIONINE
     Indication: PROPHYLAXIS
     Route: 048
     Dates: start: 20161006, end: 20161011
  11. MEDI4736 [Suspect]
     Active Substance: DURVALUMAB
     Indication: NON-SMALL CELL LUNG CANCER
     Dosage: 1060.0MG ONCE/SINGLE ADMINISTRATION
     Route: 042
     Dates: start: 20160616, end: 20160616
  12. POLITOZE [Concomitant]
     Indication: DYSPEPSIA
     Route: 048
     Dates: start: 20160526, end: 20161130
  13. BROTIZOLAM [Concomitant]
     Active Substance: BROTIZOLAM
     Indication: INSOMNIA
     Dosage: 0.25MG AS REQUIRED
     Route: 048
     Dates: end: 20161130
  14. HYDROCORTISONE. [Concomitant]
     Active Substance: HYDROCORTISONE
     Indication: ADRENAL INSUFFICIENCY
     Route: 048
     Dates: start: 20160922, end: 20160928
  15. MIRABEGRON [Concomitant]
     Active Substance: MIRABEGRON
     Indication: MICTURITION URGENCY
     Route: 048
     Dates: start: 20161005, end: 20161130
  16. DIFLUCORTOLONE VALERATE [Concomitant]
     Active Substance: DIFLUCORTOLONE VALERATE
     Indication: RASH MACULO-PAPULAR
     Dosage: 1 APPLICATION PRN
     Route: 003
     Dates: start: 20160923
  17. TREMELIMUMAB. [Suspect]
     Active Substance: TREMELIMUMAB
     Indication: NON-SMALL CELL LUNG CANCER
     Dosage: 53.0MG ONCE/SINGLE ADMINISTRATION
     Route: 042
     Dates: start: 20160906, end: 20160906
  18. HYDROCORTISONE. [Concomitant]
     Active Substance: HYDROCORTISONE
     Indication: ADRENAL INSUFFICIENCY
     Route: 048
     Dates: start: 20160929, end: 20161116
  19. GLYCYRON (AMMONIUM GLYCYRRHIZATE\GLYCINE\RACEMETHIONINE) [Concomitant]
     Active Substance: AMMONIUM GLYCYRRHIZATE\GLYCINE\RACEMETHIONINE
     Indication: PROPHYLAXIS
     Route: 048
     Dates: start: 20161012, end: 20161130
  20. MEDI4736 [Suspect]
     Active Substance: DURVALUMAB
     Indication: NON-SMALL CELL LUNG CANCER
     Dosage: 1060.0MG ONCE/SINGLE ADMINISTRATION
     Route: 042
     Dates: start: 20160714, end: 20160714
  21. MEDI4736 [Suspect]
     Active Substance: DURVALUMAB
     Indication: NON-SMALL CELL LUNG CANCER
     Dosage: 1060.0MG ONCE/SINGLE ADMINISTRATION
     Route: 042
     Dates: start: 20161020, end: 20161020
  22. HYDROCORTISONE. [Concomitant]
     Active Substance: HYDROCORTISONE
     Indication: ADRENAL INSUFFICIENCY
     Route: 048
     Dates: start: 20160922, end: 20160928
  23. HYDROCORTISONE. [Concomitant]
     Active Substance: HYDROCORTISONE
     Indication: ADRENAL INSUFFICIENCY
     Route: 048
     Dates: start: 20160929, end: 20161116
  24. LEVOTHYROXINE SODIUM. [Concomitant]
     Active Substance: LEVOTHYROXINE SODIUM
     Indication: ADRENAL INSUFFICIENCY
     Route: 048
     Dates: start: 20161003, end: 20161130
  25. CROTAMITON [Concomitant]
     Active Substance: CROTAMITON
     Indication: RASH MACULO-PAPULAR
     Dosage: 1 APPLICATION PRN
     Route: 003
     Dates: start: 20161006
  26. TREMELIMUMAB. [Suspect]
     Active Substance: TREMELIMUMAB
     Indication: NON-SMALL CELL LUNG CANCER
     Dosage: 53.0MG ONCE/SINGLE ADMINISTRATION
     Route: 042
     Dates: start: 20160714, end: 20160714
  27. DEQUALINIUM CHLORIDE [Concomitant]
     Active Substance: DEQUALINIUM CHLORIDE
     Indication: OROPHARYNGEAL PAIN
     Dosage: 0.25MG AS REQUIRED
     Route: 002
     Dates: start: 20160606, end: 20161130

REACTIONS (1)
  - Interstitial lung disease [Fatal]

NARRATIVE: CASE EVENT DATE: 20161108
